FAERS Safety Report 7809115-9 (Version None)
Quarter: 2011Q4

REPORT INFORMATION
  Report Type: 
  Country: None (occurrence: None)
  Receive Date: 20111012
  Receipt Date: 20111004
  Transmission Date: 20120403
  Serious: Yes (Congenital Anomaly, Other)
  Sender: FDA-Public Use
  Company Number: US-UCBSA-8047071

PATIENT
  Sex: Male
  Weight: 2.66 kg

DRUGS (4)
  1. MUCINEX [Concomitant]
     Indication: BRONCHITIS CHRONIC
  2. FOLIC ACID [Concomitant]
     Indication: SUPPLEMENTATION THERAPY
  3. PRENATAL VITAMINS [Concomitant]
     Indication: SUPPLEMENTATION THERAPY
     Dosage: DOSE FREQ.: DAILY
     Route: 064
  4. KEPPRA [Suspect]
     Route: 064
     Dates: start: 20081116

REACTIONS (3)
  - FOETAL CEREBROVASCULAR DISORDER [None]
  - GROSS MOTOR DELAY [None]
  - MATERNAL EXPOSURE DURING PREGNANCY [None]
